FAERS Safety Report 7462639-9 (Version None)
Quarter: 2011Q2

REPORT INFORMATION
  Report Type: 
  Country: None (occurrence: None)
  Receive Date: 20110506
  Receipt Date: 20110502
  Transmission Date: 20111010
  Serious: Yes (Death, Other)
  Sender: FDA-Public Use
  Company Number: PHHY2011US21007

PATIENT
  Sex: Male
  Weight: 62 kg

DRUGS (17)
  1. ASCRIPTIN [Concomitant]
     Dosage: 81 MG, DAILY
     Route: 048
  2. NAMENDA [Concomitant]
     Dosage: 10 MG, BID
     Route: 048
  3. ACETAMINOPHEN [Concomitant]
     Indication: ARTHRITIS
     Dosage: 650 MG, BID
     Route: 048
  4. CALCIUM CARBONATE [Concomitant]
     Dosage: 600 MG, QD
     Route: 048
  5. LIPITOR [Concomitant]
     Dosage: 80 MG, BEDTIME
  6. PLAVIX [Concomitant]
     Dosage: 75 MG, DAILY
     Route: 048
  7. FLORINEF [Concomitant]
     Dosage: 0.1 MG, DAILY
     Route: 048
  8. POTASSIUM CHLORIDE [Concomitant]
     Dosage: 10 MEQ, QD
     Route: 048
  9. CORDARONE [Concomitant]
     Dosage: 200 MG,
     Route: 048
  10. EXJADE [Suspect]
     Dosage: 500 MG, QD
     Route: 048
  11. RANITIDINE [Concomitant]
     Dosage: 300 MG, BEDTIME
     Route: 048
  12. DUDNEB [Concomitant]
     Indication: DYSPNOEA
     Dosage: 2.5-0.5 MG/3 ML TID
  13. VITAMIN C [Concomitant]
     Dosage: 1 DF, QD
     Route: 048
  14. FOLIC ACID [Concomitant]
     Dosage: 1 MG, BID
     Route: 048
  15. MULTI-VITAMINS [Concomitant]
     Dosage: 1 DF, QD
     Route: 048
  16. FUROSEMIDE [Concomitant]
     Dosage: 40 MG, DAILY
     Route: 048
  17. EXELON [Concomitant]
     Dosage: 4.6 MG, DAILY
     Route: 061

REACTIONS (3)
  - DEATH [None]
  - HYPOPNOEA [None]
  - BLOOD POTASSIUM DECREASED [None]
